FAERS Safety Report 24942979 (Version 1)
Quarter: 2025Q1

REPORT INFORMATION
  Report Type: Spontaneous
  Country: FR (occurrence: FR)
  Receive Date: 20250207
  Receipt Date: 20250207
  Transmission Date: 20250409
  Serious: Yes (Hospitalization, Other)
  Sender: OXFORD PHARMACEUTICALS, LLC
  Company Number: FR-Oxford Pharmaceuticals, LLC-2170684

PATIENT
  Age: 44 Year
  Sex: Male

DRUGS (1)
  1. BACLOFEN [Suspect]
     Active Substance: BACLOFEN
     Indication: Paraparesis

REACTIONS (6)
  - Coma [Not Recovered/Not Resolved]
  - Overdose [Unknown]
  - Off label use [Unknown]
  - Electrocardiogram abnormal [Unknown]
  - Hypotension [Unknown]
  - Generalised tonic-clonic seizure [Recovered/Resolved]
